FAERS Safety Report 21838229 (Version 1)
Quarter: 2023Q1

REPORT INFORMATION
  Report Type: Spontaneous
  Country: IT (occurrence: IT)
  Receive Date: 20230109
  Receipt Date: 20230109
  Transmission Date: 20230417
  Serious: Yes (Hospitalization)
  Sender: FDA-Public Use
  Company Number: None

PATIENT
  Age: 74 Year
  Sex: Male

DRUGS (9)
  1. COUMADIN [Suspect]
     Active Substance: WARFARIN SODIUM
     Indication: Atrial fibrillation
     Dosage: COUMADIN 5MG, TAKEN ACCORDING TO INR.
     Route: 048
     Dates: start: 202012, end: 20220416
  2. CLOPIDOGREL BISULFATE [Suspect]
     Active Substance: CLOPIDOGREL BISULFATE
     Indication: Myocardial infarction
     Dosage: CLOPIDOGREL AUR TABLET RIV 75MG, 1 TABLET/DAY
     Route: 048
     Dates: start: 202102, end: 20220418
  3. ATORVASTATIN [Concomitant]
     Active Substance: ATORVASTATIN
     Dosage: ATORVASTATIN 40MG, POSOLOGY NOT KNOWN
     Route: 048
  4. AMIODARONE [Concomitant]
     Active Substance: AMIODARONE
     Dosage: AMIODARONE 200MG, DOSAGE NOT KNOWN
     Route: 048
  5. RAMIPRIL [Concomitant]
     Active Substance: RAMIPRIL
     Dosage: RAMIPRIL 5MG, POSOLOGY NOT KNOWN
     Route: 048
  6. ALLOPURINOL [Concomitant]
     Active Substance: ALLOPURINOL
     Dosage: ALLOPURINOL 300MG, DOSAGE NOT KNOWN
     Route: 048
  7. FERROUS SULFATE [Concomitant]
     Active Substance: FERROUS SULFATE
     Dosage: POSOLOGY NOT KNOWN
     Route: 048
  8. PANTOPRAZOLE SODIUM [Concomitant]
     Active Substance: PANTOPRAZOLE SODIUM
     Dosage: PANTOPRAZOLE 40MG, POSOLOGY NOT KNOWN
     Route: 048
  9. BISOPROLOL FUMARATE [Concomitant]
     Active Substance: BISOPROLOL FUMARATE
     Dosage: BISOPROLOL 1.25MG, POSOLOGY NOT KNOWN
     Route: 048

REACTIONS (2)
  - Anaemia [Recovering/Resolving]
  - Injection site haematoma [Recovering/Resolving]

NARRATIVE: CASE EVENT DATE: 20220418
